FAERS Safety Report 6472634-4 (Version None)
Quarter: 2009Q4

REPORT INFORMATION
  Report Type: 
  Country: None (occurrence: None)
  Receive Date: 20091203
  Receipt Date: 20090105
  Transmission Date: 20100525
  Serious: No
  Sender: FDA-Public Use
  Company Number: US-AMGEN-KDL323415

PATIENT
  Sex: Female

DRUGS (8)
  1. ENBREL [Suspect]
     Indication: PSORIASIS
     Route: 058
     Dates: start: 20080714, end: 20081110
  2. ENBREL [Suspect]
     Indication: PSORIATIC ARTHROPATHY
  3. ZOLOFT [Concomitant]
  4. ALLEGRA [Concomitant]
  5. SINGULAIR [Concomitant]
  6. ADVAIR DISKUS 100/50 [Concomitant]
  7. TESSALON [Concomitant]
  8. ZOCOR [Concomitant]

REACTIONS (3)
  - COUGH [None]
  - OXYGEN CONSUMPTION INCREASED [None]
  - PNEUMONIA [None]
